FAERS Safety Report 13779651 (Version 3)
Quarter: 2017Q4

REPORT INFORMATION
  Report Type: Report from Study
  Country: None (occurrence: US)
  Receive Date: 20170722
  Receipt Date: 20171017
  Transmission Date: 20180320
  Serious: Yes (Hospitalization, Other)
  Sender: FDA-Public Use
  Company Number: US-ABBVIE-17P-163-2043111-00

PATIENT
  Age: 36 Year
  Sex: Female

DRUGS (3)
  1. NORETHINDRONE ACETATE. [Concomitant]
     Active Substance: NORETHINDRONE ACETATE
     Indication: PRODUCT USED FOR UNKNOWN INDICATION
     Route: 048
     Dates: start: 20170602
  2. LUPRON DEPOT [Suspect]
     Active Substance: LEUPROLIDE ACETATE
     Indication: ENDOMETRIOSIS
     Route: 050
     Dates: start: 2004, end: 2005
  3. LUPRON DEPOT [Suspect]
     Active Substance: LEUPROLIDE ACETATE
     Route: 050
     Dates: start: 20170602, end: 20170717

REACTIONS (15)
  - Oophorectomy [Recovered/Resolved]
  - Endometriosis [Recovered/Resolved]
  - Pain [Unknown]
  - Hot flush [Unknown]
  - Haemorrhagic ovarian cyst [Not Recovered/Not Resolved]
  - Endometriosis [Recovered/Resolved]
  - Herpes simplex [Not Recovered/Not Resolved]
  - Hypertension [Not Recovered/Not Resolved]
  - Menorrhagia [Unknown]
  - Pelvic pain [Recovered/Resolved]
  - Endometriosis [Recovered/Resolved]
  - Exposure during pregnancy [Unknown]
  - Endometriosis [Recovered/Resolved]
  - Pelvic pain [Not Recovered/Not Resolved]
  - Dizziness [Not Recovered/Not Resolved]

NARRATIVE: CASE EVENT DATE: 2004
